FAERS Safety Report 24992554 (Version 1)
Quarter: 2025Q1

REPORT INFORMATION
  Report Type: Spontaneous
  Country: US (occurrence: US)
  Receive Date: 20250221
  Receipt Date: 20250221
  Transmission Date: 20250408
  Serious: No
  Sender: CSL BEHRING
  Company Number: US-BEH-2025196058

PATIENT
  Age: 14 Year
  Sex: Male

DRUGS (1)
  1. HIZENTRA [Suspect]
     Active Substance: HUMAN IMMUNOGLOBULIN G
     Indication: Immunodeficiency common variable
     Dosage: 1 GM/5ML (INFUSE 9GM/45ML UNDER SKIN VIA PUMP), WEEKLY VIA FREEDOM PUMP
     Route: 058
     Dates: start: 20250114

REACTIONS (2)
  - Poor venous access [Unknown]
  - Needle issue [Unknown]
